FAERS Safety Report 6221630-0 (Version None)
Quarter: 2009Q2

REPORT INFORMATION
  Report Type: 
  Country: None (occurrence: None)
  Receive Date: 20090610
  Receipt Date: 20090604
  Transmission Date: 20091009
  Serious: Yes (Hospitalization)
  Sender: FDA-Public Use
  Company Number: ES-GILEAD-E2B_00000351

PATIENT
  Sex: Male
  Weight: 54 kg

DRUGS (6)
  1. TRUVADA [Suspect]
     Indication: HIV INFECTION
     Route: 048
     Dates: start: 20081223, end: 20090112
  2. COTRIM [Suspect]
     Route: 048
     Dates: start: 20081210, end: 20090112
  3. COTRIM [Suspect]
     Dates: start: 20081124
  4. FLUCONAZOLE [Suspect]
     Indication: DISSEMINATED CRYPTOCOCCOSIS
     Route: 048
     Dates: start: 20081201, end: 20090112
  5. FLUCONAZOLE [Suspect]
     Dates: start: 20081208
  6. KALETRA [Concomitant]
     Indication: HIV INFECTION
     Route: 048
     Dates: start: 20081123, end: 20090112

REACTIONS (3)
  - DEEP VEIN THROMBOSIS [None]
  - RENAL FAILURE ACUTE [None]
  - STEVENS-JOHNSON SYNDROME [None]
